FAERS Safety Report 20752368 (Version 1)
Quarter: 2022Q2

REPORT INFORMATION
  Report Type: Spontaneous
  Country: US (occurrence: None)
  Receive Date: 20220426
  Receipt Date: 20220426
  Transmission Date: 20220721
  Serious: No
  Sender: FDA-Public Use
  Company Number: US-ROCHE-2796456

PATIENT
  Age: 72 Year
  Sex: Female

DRUGS (3)
  1. ESBRIET [Suspect]
     Active Substance: PIRFENIDONE
     Indication: Idiopathic pulmonary fibrosis
     Dosage: DAY 1- 7
     Route: 048
     Dates: start: 20210215
  2. ESBRIET [Suspect]
     Active Substance: PIRFENIDONE
     Dosage: DAY 8-14
     Route: 048
  3. ESBRIET [Suspect]
     Active Substance: PIRFENIDONE
     Dosage: DAY 15 AND ON
     Route: 048

REACTIONS (4)
  - Muscle spasms [Unknown]
  - Nausea [Unknown]
  - Dizziness [Unknown]
  - Musculoskeletal stiffness [Unknown]

NARRATIVE: CASE EVENT DATE: 20210215
